FAERS Safety Report 10253266 (Version 1)
Quarter: 2014Q2

REPORT INFORMATION
  Report Type: Spontaneous
  Country: US (occurrence: US)
  Receive Date: 20140623
  Receipt Date: 20140623
  Transmission Date: 20141212
  Serious: No
  Sender: FDA-Public Use
  Company Number: US-SHIONOGI, INC-2014000131

PATIENT
  Sex: Female
  Weight: 86.62 kg

DRUGS (1)
  1. OSPHENA [Suspect]
     Indication: DYSPAREUNIA
     Dosage: 60 MG, QD
     Route: 048
     Dates: start: 20130901, end: 20131130

REACTIONS (3)
  - Bacterial vaginosis [Recovering/Resolving]
  - Vaginal ulceration [Recovering/Resolving]
  - Vaginal discharge [None]
